FAERS Safety Report 8492840-7 (Version None)
Quarter: 2012Q3

REPORT INFORMATION
  Report Type: 
  Country: None (occurrence: None)
  Receive Date: 20120706
  Receipt Date: 20120628
  Transmission Date: 20120928
  Serious: Yes (Other)
  Sender: FDA-Public Use
  Company Number: IT-BRISTOL-MYERS SQUIBB COMPANY-16731515

PATIENT

DRUGS (2)
  1. OPIUM/NALOXONE TAB [Concomitant]
     Dosage: 1 DF:10 UNIT NOS
     Route: 048
     Dates: start: 20120509
  2. ERBITUX [Suspect]
     Indication: COLORECTAL CANCER
     Dosage: 1DF:500 UNITS NOS.
     Route: 042
     Dates: start: 20120418

REACTIONS (1)
  - INTESTINAL OBSTRUCTION [None]
